FAERS Safety Report 23106858 (Version 2)
Quarter: 2023Q4

REPORT INFORMATION
  Report Type: Spontaneous
  Country: DE (occurrence: DE)
  Receive Date: 20231026
  Receipt Date: 20231114
  Transmission Date: 20240109
  Serious: Yes (Other)
  Sender: FDA-Public Use
  Company Number: None

PATIENT

DRUGS (14)
  1. LAMOTRIGINE [Suspect]
     Active Substance: LAMOTRIGINE
     Indication: Product used for unknown indication
     Dosage: UNK
     Route: 065
  2. LAMOTRIGINE [Suspect]
     Active Substance: LAMOTRIGINE
     Dosage: UNK (FIRST 2 WEEKS: 25-0)
     Route: 065
  3. LAMOTRIGINE [Suspect]
     Active Substance: LAMOTRIGINE
     Dosage: UNK (THIRD WEEK: 25-25)
     Route: 065
  4. LAMOTRIGINE [Suspect]
     Active Substance: LAMOTRIGINE
     Dosage: UNK (FOURTH WEEK: 50-25)
     Route: 065
  5. LAMOTRIGINE [Suspect]
     Active Substance: LAMOTRIGINE
     Dosage: UNK (FIFTH WEEK: 50-50SIXTH WEEK: STILL 50-50)
     Route: 065
  6. LAMOTRIGINE [Suspect]
     Active Substance: LAMOTRIGINE
     Dosage: UNK (SEVENTH WEEK: CONTINUED TO KEEP THE LEVEL OF 50-50)
     Route: 065
  7. LAMOTRIGINE [Suspect]
     Active Substance: LAMOTRIGINE
     Dosage: UNK (EIGHTH WEEK: DOSED DOWN TO 50-25)
     Route: 065
  8. LAMOTRIGINE [Suspect]
     Active Substance: LAMOTRIGINE
     Dosage: UNK (NINTH WEEK: FURTHER REDUCED TO 25-25)
     Route: 065
  9. LAMOTRIGINE [Suspect]
     Active Substance: LAMOTRIGINE
     Dosage: UNK UNK, QD (TENTH AND ELEVENTH WEEK: 25-0)
     Route: 065
  10. LACOSAMIDE [Suspect]
     Active Substance: LACOSAMIDE
     Indication: Product used for unknown indication
     Dosage: UNK
     Route: 065
  11. PRIMIDONE [Suspect]
     Active Substance: PRIMIDONE
     Indication: Product used for unknown indication
     Dosage: UNK
     Route: 065
  12. LEVETIRACETAM [Suspect]
     Active Substance: LEVETIRACETAM
     Indication: Product used for unknown indication
     Dosage: UNK
     Route: 065
  13. VALPROATE [Concomitant]
     Active Substance: VALPROIC ACID
     Indication: Product used for unknown indication
     Dosage: UNK
     Route: 065
  14. VALPROATE [Concomitant]
     Active Substance: VALPROIC ACID
     Indication: Product used for unknown indication
     Dosage: UNK
     Route: 065

REACTIONS (22)
  - Umbilical haemorrhage [Unknown]
  - Epilepsy [Unknown]
  - Petit mal epilepsy [Unknown]
  - Alopecia [Unknown]
  - Lip injury [Unknown]
  - Restlessness [Unknown]
  - Hypophagia [Unknown]
  - Aggression [Unknown]
  - Weight decreased [Unknown]
  - Insomnia [Unknown]
  - Pruritus [Unknown]
  - Anger [Unknown]
  - Hypersensitivity [Unknown]
  - Subcutaneous abscess [Unknown]
  - Muscle twitching [Unknown]
  - Hypersensitivity [Recovering/Resolving]
  - Pruritus [Recovering/Resolving]
  - Lip haemorrhage [Recovering/Resolving]
  - Ingrown hair [Unknown]
  - Aggression [Recovering/Resolving]
  - Loss of libido [Recovering/Resolving]
  - Axillary pain [Recovering/Resolving]
